FAERS Safety Report 6397683-6 (Version None)
Quarter: 2009Q4

REPORT INFORMATION
  Report Type: 
  Country: None (occurrence: None)
  Receive Date: 20091012
  Receipt Date: 20090930
  Transmission Date: 20100525
  Serious: Yes (Hospitalization)
  Sender: FDA-Public Use
  Company Number: FR-PFIZER INC-2009278736

PATIENT
  Age: 59 Year

DRUGS (4)
  1. HYDROXYZINE HCL [Suspect]
     Indication: ANXIETY
     Dosage: UNK
     Route: 048
     Dates: start: 20090529, end: 20090901
  2. TERCIAN [Suspect]
     Dosage: UNK
     Route: 048
     Dates: start: 20090819, end: 20090831
  3. LOXAPAC [Suspect]
     Dosage: 450 GTT, UNK
     Route: 048
     Dates: start: 20090603, end: 20090831
  4. RIVOTRIL [Concomitant]
     Dosage: UNK
     Route: 048
     Dates: start: 20090827

REACTIONS (1)
  - AGRANULOCYTOSIS [None]
